FAERS Safety Report 13614859 (Version 1)
Quarter: 2017Q2

REPORT INFORMATION
  Report Type: Spontaneous
  Country: PE (occurrence: PE)
  Receive Date: 20170606
  Receipt Date: 20170606
  Transmission Date: 20170830
  Serious: Yes (Other)
  Sender: FDA-Public Use
  Company Number: PE-GLAXOSMITHKLINE-PE2017GSK084493

PATIENT
  Age: 86 Year
  Sex: Male

DRUGS (1)
  1. SERETIDE [Suspect]
     Active Substance: FLUTICASONE PROPIONATE\SALMETEROL XINAFOATE
     Indication: ASTHMA
     Dosage: 250 UG, QID
     Route: 055
     Dates: start: 201605

REACTIONS (2)
  - Asthmatic crisis [Unknown]
  - Bronchial disorder [Unknown]

NARRATIVE: CASE EVENT DATE: 201705
